FAERS Safety Report 7162709-9 (Version None)
Quarter: 2010Q4

REPORT INFORMATION
  Report Type: 
  Country: None (occurrence: None)
  Receive Date: 20101215
  Receipt Date: 20091210
  Transmission Date: 20110411
  Serious: Yes (Other)
  Sender: FDA-Public Use
  Company Number: FR-PFIZER INC-2009293499

PATIENT
  Age: 85 Year

DRUGS (5)
  1. FELDENE [Suspect]
     Route: 048
  2. ZESTORETIC [Suspect]
     Dosage: UNK
     Route: 048
  3. ELISOR [Suspect]
     Route: 048
  4. LASIX [Suspect]
     Route: 048
  5. ALLOPURINOL [Suspect]
     Route: 048

REACTIONS (1)
  - INTERSTITIAL LUNG DISEASE [None]
